FAERS Safety Report 8439174-4 (Version None)
Quarter: 2012Q2

REPORT INFORMATION
  Report Type: 
  Country: None (occurrence: None)
  Receive Date: 20120615
  Receipt Date: 20120608
  Transmission Date: 20120825
  Serious: Yes (Death, Other)
  Sender: FDA-Public Use
  Company Number: PHHY2012CO018668

PATIENT
  Sex: Female

DRUGS (8)
  1. SANDOSTATIN [Suspect]
     Indication: NEUROENDOCRINE TUMOUR
     Dosage: 0.3 MG, DAILY
     Dates: start: 20120206
  2. ENALAPRIL MALEATE [Concomitant]
  3. SANDOSTATIN LAR [Suspect]
     Indication: NEUROENDOCRINE TUMOUR
     Dosage: 20 MG, QMO
     Dates: start: 20120223
  4. CARVEDILOL [Concomitant]
  5. GLUCOFAGE [Concomitant]
  6. ANTICOAGULANTS [Concomitant]
  7. OMEPRAZOLE [Concomitant]
  8. LOSARTAN POTASSIUM [Concomitant]

REACTIONS (2)
  - DEATH [None]
  - TERMINAL STATE [None]
